FAERS Safety Report 4400717-9 (Version None)
Quarter: 2004Q3

REPORT INFORMATION
  Report Type: 
  Country: None (occurrence: None)
  Receive Date: 20040719
  Receipt Date: 20040611
  Transmission Date: 20050211
  Serious: Yes (Hospitalization)
  Sender: FDA-Public Use
  Company Number: US-AMGEN-US080104

PATIENT
  Sex: Male
  Weight: 59.5 kg

DRUGS (3)
  1. EPOGEN [Suspect]
     Indication: PRE-EXISTING DISEASE
     Route: 058
     Dates: start: 20040301, end: 20040413
  2. PEGASYS [Concomitant]
     Dates: start: 20031205
  3. RIBAVIRIN [Concomitant]
     Dates: start: 20031205

REACTIONS (2)
  - DEEP VEIN THROMBOSIS [None]
  - PULMONARY EMBOLISM [None]
